FAERS Safety Report 5834056-6 (Version None)
Quarter: 2008Q3

REPORT INFORMATION
  Report Type: 
  Country: None (occurrence: None)
  Receive Date: 20080731
  Receipt Date: 20080722
  Transmission Date: 20090109
  Serious: Yes (Hospitalization)
  Sender: FDA-Public Use
  Company Number: 2008AL008766

PATIENT
  Age: 46 Year
  Sex: Female

DRUGS (1)
  1. DIGOXIN [Suspect]
     Indication: ATRIAL FIBRILLATION

REACTIONS (1)
  - THERAPEUTIC AGENT TOXICITY [None]
